FAERS Safety Report 6255600-3 (Version None)
Quarter: 2009Q3

REPORT INFORMATION
  Report Type: 
  Country: None (occurrence: None)
  Receive Date: 20090701
  Receipt Date: 20090618
  Transmission Date: 20100115
  Serious: Yes (Hospitalization)
  Sender: FDA-Public Use
  Company Number: 231838K09USA

PATIENT
  Age: 66 Year
  Sex: Female
  Weight: 77 kg

DRUGS (8)
  1. REBIF [Suspect]
     Indication: MULTIPLE SCLEROSIS
     Dosage: 44 MCG, 3 IN 1 WEEKS, SUBCUTANEOUS
     Route: 058
     Dates: start: 20080818
  2. ATENOLOL [Concomitant]
  3. FEMARA [Concomitant]
  4. ASPIRIN [Concomitant]
  5. HYDROCHLOROTHIAZIDE [Concomitant]
  6. BONIVA [Concomitant]
  7. VYTORIN [Concomitant]
  8. CALCIUM (CALCIUM-SANDOZ /00009901/) [Concomitant]

REACTIONS (3)
  - ARTHRITIS [None]
  - BONE GRAFT [None]
  - INTERVERTEBRAL DISC PROTRUSION [None]
